FAERS Safety Report 6723660-9 (Version None)
Quarter: 2010Q2

REPORT INFORMATION
  Report Type: 
  Country: None (occurrence: None)
  Receive Date: 20100513
  Receipt Date: 20100511
  Transmission Date: 20101027
  Serious: Yes (Death)
  Sender: FDA-Public Use
  Company Number: PHHY2010US29759

PATIENT
  Sex: Male

DRUGS (1)
  1. AFINITOR [Suspect]
     Dosage: 1WEEK ONLY
     Route: 048
     Dates: start: 20100424

REACTIONS (1)
  - MALIGNANT NEOPLASM PROGRESSION [None]
